FAERS Safety Report 25826125 (Version 1)
Quarter: 2025Q3

REPORT INFORMATION
  Report Type: Spontaneous
  Country: PS (occurrence: PS)
  Receive Date: 20250919
  Receipt Date: 20250919
  Transmission Date: 20251021
  Serious: Yes (Other)
  Sender: AMGEN
  Company Number: PS-AMGEN-PSESP2025183452

PATIENT
  Age: 17 Month
  Sex: Female
  Weight: 12 kg

DRUGS (13)
  1. ETANERCEPT [Suspect]
     Active Substance: ETANERCEPT
     Indication: Inflammation
     Dosage: 8 MILLIGRAM, QWK
     Route: 065
  2. ETANERCEPT [Suspect]
     Active Substance: ETANERCEPT
     Indication: Off label use
  3. POTASSIUM CHLORIDE [Concomitant]
     Active Substance: POTASSIUM CHLORIDE
  4. POTASSIUM [Concomitant]
     Active Substance: POTASSIUM
     Route: 048
  5. MAGNESIUM SULFATE [Concomitant]
     Active Substance: MAGNESIUM SULFATE
  6. METHYLPREDNISOLONE [Concomitant]
     Active Substance: METHYLPREDNISOLONE
     Dosage: 10 MILLIGRAM, QD
     Route: 040
  7. PREDNISONE [Concomitant]
     Active Substance: PREDNISONE
     Dosage: 6 MILLIGRAM, QD
     Route: 048
  8. URSODIOL [Concomitant]
     Active Substance: URSODIOL
     Dosage: 80 MILLIGRAM, TID
  9. ACETAMINOPHEN [Concomitant]
     Active Substance: ACETAMINOPHEN
  10. VITAMIN K [Concomitant]
     Active Substance: PHYTONADIONE
  11. IRON [Concomitant]
     Active Substance: IRON
  12. Immunoglobulin [Concomitant]
     Route: 040
  13. AZATHIOPRINE [Concomitant]
     Active Substance: AZATHIOPRINE
     Dosage: 1 MILLIGRAM, QD
     Route: 048

REACTIONS (5)
  - Portal vein thrombosis [Unknown]
  - Hepatosplenomegaly [Unknown]
  - Off label use [Unknown]
  - Hepatic function abnormal [Unknown]
  - General physical health deterioration [Unknown]
